FAERS Safety Report 5645510-4 (Version None)
Quarter: 2008Q1

REPORT INFORMATION
  Report Type: 
  Country: None (occurrence: None)
  Receive Date: 20080229
  Receipt Date: 20080222
  Transmission Date: 20080703
  Serious: Yes (Life-Threatening, Hospitalization)
  Sender: FDA-Public Use
  Company Number: NO-AVENTIS-200810753GDDC

PATIENT
  Age: 66 Year
  Sex: Male

DRUGS (8)
  1. TAXOTERE [Suspect]
     Route: 042
     Dates: start: 20080107, end: 20080107
  2. CISPLATIN [Suspect]
     Route: 042
     Dates: start: 20080107, end: 20080107
  3. FLUOROURACIL [Suspect]
     Route: 042
     Dates: start: 20080107, end: 20080110
  4. CIPROXIN                           /00697201/ [Concomitant]
     Indication: PROPHYLAXIS
     Dosage: DOSE: 500 X 2
     Dates: start: 20080111
  5. ZOFRAN [Concomitant]
     Indication: NAUSEA
     Dosage: DOSE: 8 X 2
     Dates: start: 20080107, end: 20080112
  6. EMEND [Concomitant]
     Indication: NAUSEA
     Dates: start: 20080107, end: 20080107
  7. EMEND [Concomitant]
     Dates: start: 20080108, end: 20080109
  8. AFIPRAN                            /00041901/ [Concomitant]
     Indication: NAUSEA
     Dosage: DOSE: 10 X 3 OR AS NEEDED
     Dates: start: 20080107

REACTIONS (6)
  - AORTIC THROMBOSIS [None]
  - COMPARTMENT SYNDROME [None]
  - LERICHE SYNDROME [None]
  - MONOPARESIS [None]
  - NEPHROPATHY [None]
  - RHABDOMYOLYSIS [None]
